FAERS Safety Report 8065980-4 (Version None)
Quarter: 2012Q1

REPORT INFORMATION
  Report Type: 
  Country: None (occurrence: None)
  Receive Date: 20120124
  Receipt Date: 20120113
  Transmission Date: 20120608
  Serious: Yes (Hospitalization)
  Sender: FDA-Public Use
  Company Number: US-JNJFOC-20110502074

PATIENT
  Sex: Male
  Weight: 81.4 kg

DRUGS (4)
  1. ABIRATERONE ACETATE [Suspect]
     Route: 048
     Dates: start: 20110411, end: 20110516
  2. ABIRATERONE ACETATE [Suspect]
     Indication: PROSTATE CANCER METASTATIC
     Route: 048
     Dates: end: 20110523
  3. DOCETAXEL [Concomitant]
     Indication: CHEMOTHERAPY
     Route: 065
     Dates: start: 20110301
  4. PREDNISONE TAB [Suspect]
     Indication: PROSTATE CANCER METASTATIC
     Route: 065
     Dates: start: 20110411, end: 20110523

REACTIONS (4)
  - MUSCULOSKELETAL PAIN [None]
  - PYREXIA [None]
  - BACK PAIN [None]
  - DEHYDRATION [None]
